FAERS Safety Report 4678196-6 (Version None)
Quarter: 2005Q2

REPORT INFORMATION
  Report Type: 
  Country: None (occurrence: None)
  Receive Date: 20050527
  Receipt Date: 20050516
  Transmission Date: 20051028
  Serious: Yes (Hospitalization)
  Sender: FDA-Public Use
  Company Number: MK200505-0209-1

PATIENT
  Age: 61 Year
  Sex: Female

DRUGS (1)
  1. ANAFRANIL [Suspect]
     Dosage: 25MG, QID
     Dates: end: 20050326

REACTIONS (3)
  - IRON DEFICIENCY ANAEMIA [None]
  - MICROCYTIC ANAEMIA [None]
  - PNEUMONITIS [None]
